FAERS Safety Report 6839035-8 (Version None)
Quarter: 2010Q3

REPORT INFORMATION
  Report Type: 
  Country: None (occurrence: None)
  Receive Date: 20100714
  Receipt Date: 20100304
  Transmission Date: 20110219
  Serious: Yes (Other)
  Sender: FDA-Public Use
  Company Number: US-ASTRAZENECA-2007UW02087

PATIENT
  Age: 17013 Day
  Sex: Male

DRUGS (23)
  1. SEROQUEL [Suspect]
     Indication: NERVOUSNESS
     Dosage: 100 TO 300 MG
     Route: 048
     Dates: start: 20021216
  2. SEROQUEL [Suspect]
     Indication: INSOMNIA
     Dosage: 100 TO 300 MG
     Route: 048
     Dates: start: 20021216
  3. SEROQUEL [Suspect]
     Route: 048
     Dates: start: 20030501
  4. SEROQUEL [Suspect]
     Route: 048
     Dates: start: 20030501
  5. SEROQUEL [Suspect]
     Route: 048
  6. SEROQUEL [Suspect]
     Route: 048
  7. GEODON [Concomitant]
     Dates: start: 20030601, end: 20031001
  8. GEODON [Concomitant]
     Dates: start: 20050201, end: 20070401
  9. EQUETRO [Concomitant]
     Dates: start: 20060807, end: 20061101
  10. ADVICOR [Concomitant]
     Dates: start: 20020608
  11. PREVACID [Concomitant]
     Dates: start: 20021114
  12. TRICOR [Concomitant]
     Dates: start: 20021121
  13. ALPRAZOLAM [Concomitant]
     Dates: start: 20021121
  14. EFFEXOR XR [Concomitant]
     Dosage: 37.5 MG AND 150 MG DISPENSED
     Dates: start: 20021202
  15. REMERON [Concomitant]
     Dates: start: 20021202
  16. METOPROLOL [Concomitant]
     Dates: start: 20021203
  17. AMBIEN [Concomitant]
     Dates: start: 20021217
  18. LIPITOR [Concomitant]
     Dates: start: 20030106
  19. CARISOPRODOL [Concomitant]
     Dates: start: 20030306
  20. CRESTOR [Concomitant]
     Dates: start: 20050615
  21. LEVOXYL [Concomitant]
     Dates: start: 20050615
  22. ATIVAN [Concomitant]
     Dates: start: 20060807
  23. WELLBUTRIN SR [Concomitant]
     Dates: start: 20060807

REACTIONS (11)
  - ANXIETY [None]
  - ARTHRALGIA [None]
  - CHEST PAIN [None]
  - DEPRESSION [None]
  - DYSPEPSIA [None]
  - ERECTILE DYSFUNCTION [None]
  - MULTIPLE ALLERGIES [None]
  - MYOCARDIAL INFARCTION [None]
  - PAIN [None]
  - PLASMAPHERESIS [None]
  - TYPE 2 DIABETES MELLITUS [None]
